FAERS Safety Report 10861950 (Version 12)
Quarter: 2022Q2

REPORT INFORMATION
  Report Type: Spontaneous
  Country: ES (occurrence: ES)
  Receive Date: 20150224
  Receipt Date: 20220512
  Transmission Date: 20220720
  Serious: Yes (Hospitalization, Other)
  Sender: FDA-Public Use
  Company Number: ES-PFIZER INC-2015064131

PATIENT
  Age: 47 Year
  Sex: Female

DRUGS (48)
  1. GABAPENTIN [Suspect]
     Active Substance: GABAPENTIN
     Indication: Depression
     Dosage: FREQ:24 H;300 MG, QD
     Route: 065
  2. GABAPENTIN [Suspect]
     Active Substance: GABAPENTIN
     Dosage: 3300 MG, 1X/DAY
  3. LORAZEPAM [Suspect]
     Active Substance: LORAZEPAM
     Indication: Depression
     Dosage: FREQ:24 H;300 MG, QD
     Route: 065
  4. VENLAFAXINE HYDROCHLORIDE [Suspect]
     Active Substance: VENLAFAXINE HYDROCHLORIDE
     Indication: Depression
     Dosage: 75 MG, 1X/DAY
  5. VENLAFAXINE HYDROCHLORIDE [Suspect]
     Active Substance: VENLAFAXINE HYDROCHLORIDE
     Dosage: 10 MG, UNK
  6. LORAZEPAM [Suspect]
     Active Substance: LORAZEPAM
     Indication: Depression
     Dosage: 300 MG, DAILY
  7. VENLAFAXINE HCL [Suspect]
     Active Substance: VENLAFAXINE HYDROCHLORIDE
     Indication: Depression
     Dosage: 75 MG, 1X/DAY
  8. ABILIFY [Suspect]
     Active Substance: ARIPIPRAZOLE
     Indication: Depression
     Dosage: FREQ:24 H;5 MG, QD
     Route: 065
  9. ANAFRANIL [Suspect]
     Active Substance: CLOMIPRAMINE HYDROCHLORIDE
     Indication: Depression
     Dosage: FREQ:24 H;75 MG, QD
     Route: 065
  10. ANAFRANIL [Suspect]
     Active Substance: CLOMIPRAMINE HYDROCHLORIDE
     Dosage: 10 MG, UNK
  11. ARIPIPRAZOLE [Suspect]
     Active Substance: ARIPIPRAZOLE
     Indication: Depression
     Dosage: 5 MG
  12. CYMBALTA [Suspect]
     Active Substance: DULOXETINE HYDROCHLORIDE
     Indication: Depression
     Dosage: FREQ:24 H;200 MG, QD
     Route: 065
  13. VALPROATE SODIUM [Suspect]
     Active Substance: VALPROATE SODIUM
     Indication: Depression
     Dosage: 200 MG, 1X/DAY
  14. TRAZODONE HYDROCHLORIDE [Suspect]
     Active Substance: TRAZODONE HYDROCHLORIDE
     Indication: Depression
     Dosage: 200 MG, 1X/DAY
  15. INVEGA SUSTENNA [Suspect]
     Active Substance: PALIPERIDONE PALMITATE
     Indication: Depression
     Dosage: 5 MG, UNK
  16. INVEGA SUSTENNA [Suspect]
     Active Substance: PALIPERIDONE PALMITATE
     Dosage: UNK
     Route: 065
  17. LEVOMEPROMAZINE [Suspect]
     Active Substance: LEVOMEPROMAZINE
     Indication: Depression
     Dosage: UNK
  18. LUDIOMIL [Suspect]
     Active Substance: MAPROTILINE HYDROCHLORIDE
     Indication: Depression
     Dosage: 75 MG, 1X/DAY
  19. OLANZAPINE [Suspect]
     Active Substance: OLANZAPINE
     Indication: Depression
     Dosage: 2.5 MG, UNK
  20. PALIPERIDONE PALMITATE [Suspect]
     Active Substance: PALIPERIDONE PALMITATE
     Indication: Depression
     Dosage: UNK
  21. QUETIAPINE [Suspect]
     Active Substance: QUETIAPINE
     Indication: Depression
     Dosage: 50 MG, UNK
  22. QUETIAPINE [Suspect]
     Active Substance: QUETIAPINE
     Dosage: 100 MG
  23. RISPERDAL [Suspect]
     Active Substance: RISPERIDONE
     Indication: Depression
     Dosage: FREQ:24 H;2.5 MG, QD
     Route: 065
  24. RISPERIDONE [Suspect]
     Active Substance: RISPERIDONE
     Indication: Depression
     Dosage: 2.5 MG, DAILY
  25. QUETIAPINE FUMARATE [Suspect]
     Active Substance: QUETIAPINE FUMARATE
     Indication: Depression
     Dosage: 100 MG, UNK
  26. QUETIAPINE FUMARATE [Suspect]
     Active Substance: QUETIAPINE FUMARATE
     Dosage: UNK, DAILY
  27. SEROQUEL [Suspect]
     Active Substance: QUETIAPINE FUMARATE
     Indication: Depression
     Dosage: FREQ:24 H;50 MG, QD
     Route: 065
  28. SEROQUEL [Suspect]
     Active Substance: QUETIAPINE FUMARATE
     Dosage: UNK, DAILY
  29. LEVOMEPROMAZINE [Suspect]
     Active Substance: LEVOMEPROMAZINE
     Indication: Depression
     Dosage: 50 MG, 1X/DAY
  30. AMISULPRIDE [Suspect]
     Active Substance: AMISULPRIDE
     Indication: Depression
     Dosage: 5 MG, UNK
     Route: 065
  31. TRAZODONE HYDROCHLORIDE [Suspect]
     Active Substance: TRAZODONE HYDROCHLORIDE
     Indication: Depression
     Dosage: UNK
  32. TRYPTIZOL [Suspect]
     Active Substance: AMITRIPTYLINE HYDROCHLORIDE
     Indication: Depression
     Dosage: 75 MG, UNK
  33. TRILEPTAL [Suspect]
     Active Substance: OXCARBAZEPINE
     Indication: Depression
     Dosage: 5 MG, UNK
  34. TRILEPTAL [Suspect]
     Active Substance: OXCARBAZEPINE
     Dosage: UNK
     Route: 065
  35. VENLAFAXINE HYDROCHLORIDE [Suspect]
     Active Substance: VENLAFAXINE HYDROCHLORIDE
     Indication: Depression
     Dosage: FREQ:24 H;75 MG, QD
     Route: 065
  36. VENLAFAXINE HYDROCHLORIDE [Suspect]
     Active Substance: VENLAFAXINE HYDROCHLORIDE
     Dosage: UNK, DAILY
  37. INVEGA [Suspect]
     Active Substance: PALIPERIDONE
     Indication: Depression
     Dosage: 5 MG, UNK
     Route: 065
  38. VALPROIC ACID [Suspect]
     Active Substance: VALPROIC ACID
     Indication: Depression
     Dosage: FREQ:24 H;200 MG, QD
     Route: 065
  39. ARIPIPRAZOLE [Suspect]
     Active Substance: ARIPIPRAZOLE
     Indication: Depression
     Dosage: 5 MG, UNK
     Route: 065
  40. LEVOMEPROMAZINE MALEATE [Suspect]
     Active Substance: LEVOMEPROMAZINE MALEATE
     Indication: Depression
     Route: 065
  41. VENLAFAXINE HYDROCHLORIDE [Suspect]
     Active Substance: VENLAFAXINE HYDROCHLORIDE
     Indication: Depression
     Dosage: 75 MG, UNK
     Route: 065
  42. VENLAFAXINE HYDROCHLORIDE [Suspect]
     Active Substance: VENLAFAXINE HYDROCHLORIDE
     Dosage: 10 UNK
  43. QUETIAPINE FUMARATE [Suspect]
     Active Substance: QUETIAPINE FUMARATE
     Indication: Depression
     Dosage: 100 MG, UNK
     Route: 065
  44. TRAZODONE HYDROCHLORIDE [Suspect]
     Active Substance: TRAZODONE HYDROCHLORIDE
     Indication: Depression
     Dosage: FREQ:24 H;200 MG, QD
     Route: 065
  45. ZYPREXA [Suspect]
     Active Substance: OLANZAPINE
     Dosage: FREQ:24 H;75 MG, QD
     Route: 065
  46. ZYPREXA [Suspect]
     Active Substance: OLANZAPINE
     Dosage: 2.5 UNK
  47. LUDIOMIL [Suspect]
     Active Substance: MAPROTILINE HYDROCHLORIDE
     Indication: Depression
     Dosage: FREQ:24 H;75 MG, QD
     Route: 065
  48. AMITRIPTYLINE HYDROCHLORIDE [Suspect]
     Active Substance: AMITRIPTYLINE HYDROCHLORIDE
     Indication: Depression
     Dosage: 75 MG, UNK
     Route: 065

REACTIONS (11)
  - Mental disorder [Unknown]
  - Vision blurred [Unknown]
  - Conjunctivitis [Unknown]
  - Psoriasis [Unknown]
  - Disease progression [Unknown]
  - Constipation [Unknown]
  - Eye irritation [Unknown]
  - Dry eye [Unknown]
  - Visual impairment [Unknown]
  - Product use in unapproved indication [Unknown]
  - Intestinal obstruction [Unknown]
